FAERS Safety Report 14860576 (Version 1)
Quarter: 2018Q2

REPORT INFORMATION
  Report Type: Report from Study
  Country: US (occurrence: US)
  Receive Date: 20180508
  Receipt Date: 20180508
  Transmission Date: 20180711
  Serious: Yes (Hospitalization, Other)
  Sender: FDA-Public Use
  Company Number: US-BAYER-2018-083197

PATIENT
  Sex: Female
  Weight: 78.01 kg

DRUGS (3)
  1. ADEMPAS [Suspect]
     Active Substance: RIOCIGUAT
     Indication: PULMONARY ARTERIAL HYPERTENSION
     Dosage: UNK
     Dates: start: 20160215
  2. ADEMPAS [Suspect]
     Active Substance: RIOCIGUAT
     Indication: PULMONARY ARTERIAL HYPERTENSION
     Dosage: 1 MG, TID
     Route: 048
  3. REMODULIN [Concomitant]
     Active Substance: TREPROSTINIL
     Dosage: UNK
     Dates: start: 2015

REACTIONS (16)
  - Pain [None]
  - Fall [None]
  - Application site infection [None]
  - Influenza like illness [None]
  - Pyrexia [None]
  - Vomiting [None]
  - Diarrhoea [None]
  - Chills [None]
  - Dizziness [Unknown]
  - Inflammation [None]
  - Headache [None]
  - Wound haemorrhage [None]
  - Nausea [None]
  - Muscular weakness [None]
  - Asthenia [Unknown]
  - Nausea [Unknown]
